FAERS Safety Report 4362224-1 (Version None)
Quarter: 2004Q2

REPORT INFORMATION
  Report Type: 
  Country: None (occurrence: None)
  Receive Date: 20040518
  Receipt Date: 20040503
  Transmission Date: 20050107
  Serious: Yes (Hospitalization)
  Sender: FDA-Public Use
  Company Number: 2004211596US

PATIENT
  Age: 86 Year
  Sex: Female
  Weight: 63.9 kg

DRUGS (7)
  1. EXEMESTANE VS TAMOXIFEN (COMPARATOR-TAMOXIFEN) (EXEMESTANE VS TAMOXIFE [Suspect]
     Indication: BREAST CANCER
     Dosage: QD, ORAL
     Route: 048
     Dates: start: 20040414, end: 20040426
  2. FOSAMAX [Concomitant]
  3. COZAAR [Concomitant]
  4. NORVASC [Concomitant]
  5. ASPIRIN [Concomitant]
  6. PROTONIX [Concomitant]
  7. BETAGAN (LEVOBUNOLOL HYDROCHLORIDE) [Concomitant]

REACTIONS (5)
  - ABDOMINAL PAIN [None]
  - ADNEXA UTERI MASS [None]
  - HAEMORRHOIDS [None]
  - OVARIAN CANCER [None]
  - RECTAL HAEMORRHAGE [None]
